FAERS Safety Report 4695470-8 (Version None)
Quarter: 2005Q2

REPORT INFORMATION
  Report Type: 
  Country: None (occurrence: None)
  Receive Date: 20050620
  Receipt Date: 20050620
  Transmission Date: 20051028
  Serious: Yes (Hospitalization, Disabling, Other)
  Sender: FDA-Public Use
  Company Number: None

PATIENT
  Age: 38 Year
  Sex: Male
  Weight: 122.4712 kg

DRUGS (2)
  1. ZOLOFT [Suspect]
     Indication: POST-TRAUMATIC STRESS DISORDER
     Dosage: RANGE FROM 98-03 37 1/2 TO 3 MGS
     Dates: start: 19980101
  2. BUSPAR [Suspect]
     Dosage: 30 - 5 MGS
     Dates: start: 19980101, end: 20040101

REACTIONS (3)
  - DEHYDRATION [None]
  - DRUG WITHDRAWAL SYNDROME [None]
  - WEIGHT DECREASED [None]
